FAERS Safety Report 26060427 (Version 2)
Quarter: 2025Q4

REPORT INFORMATION
  Report Type: Spontaneous
  Country: US (occurrence: US)
  Receive Date: 20251118
  Receipt Date: 20251222
  Transmission Date: 20260118
  Serious: No
  Sender: SANOFI AVENTIS
  Company Number: US-SA-2025SA342782

PATIENT
  Age: 14 Year
  Sex: Male
  Weight: 68.744 kg

DRUGS (7)
  1. DUPIXENT [Suspect]
     Active Substance: DUPILUMAB
     Indication: Skin hyperpigmentation
     Dosage: 600 MG, 1X
     Route: 058
     Dates: start: 20251001, end: 20251001
  2. DUPIXENT [Suspect]
     Active Substance: DUPILUMAB
     Indication: Acne
     Dosage: 300 MG, QOW
     Route: 058
     Dates: start: 20251001, end: 20251112
  3. DUPIXENT [Suspect]
     Active Substance: DUPILUMAB
     Indication: Dermatitis atopic
  4. VTAMA [Concomitant]
     Active Substance: TAPINAROF
     Dosage: 1 CREAM , QD
     Route: 061
  5. TRIAMCINOLONE ACETONIDE [Concomitant]
     Active Substance: TRIAMCINOLONE ACETONIDE
     Dosage: 1 CREAM FOR BID PRN
     Route: 061
  6. CLINDAGEL [Concomitant]
     Active Substance: CLINDAMYCIN PHOSPHATE
     Dosage: 1 DOSE SWAB , QD
     Route: 061
  7. AKLIEF [Concomitant]
     Active Substance: TRIFAROTENE
     Dosage: 1 CREAM QD

REACTIONS (3)
  - Migraine [Unknown]
  - Amnesia [Unknown]
  - Product use in unapproved indication [Unknown]

NARRATIVE: CASE EVENT DATE: 20251001
